FAERS Safety Report 23696693 (Version 3)
Quarter: 2024Q2

REPORT INFORMATION
  Report Type: Spontaneous
  Country: US (occurrence: US)
  Receive Date: 20240402
  Receipt Date: 20240423
  Transmission Date: 20240716
  Serious: Yes (Hospitalization)
  Sender: FDA-Public Use
  Company Number: US-ULTRAGENYX PHARMACEUTICAL INC.-US-UGX-24-00575

PATIENT
  Age: 22 Year
  Sex: Male
  Weight: 34.8 kg

DRUGS (1)
  1. MEPSEVII [Suspect]
     Active Substance: VESTRONIDASE ALFA-VJBK
     Indication: Mucopolysaccharidosis
     Dosage: 140 MILLIGRAM, QOW
     Route: 042
     Dates: end: 20240307

REACTIONS (4)
  - Rhinovirus infection [Unknown]
  - Bacterial test positive [Unknown]
  - Poor venous access [Not Recovered/Not Resolved]
  - Hypoglycaemia [Unknown]

NARRATIVE: CASE EVENT DATE: 20240319
